FAERS Safety Report 24299381 (Version 1)
Quarter: 2024Q3

REPORT INFORMATION
  Report Type: Spontaneous
  Country: US (occurrence: None)
  Receive Date: 20240906
  Receipt Date: 20240906
  Transmission Date: 20241017
  Serious: Yes (Other)
  Sender: Public
  Company Number: None

PATIENT
  Age: 55 Year
  Sex: Female
  Weight: 67.5 kg

DRUGS (12)
  1. NICORETTE [Suspect]
     Active Substance: NICOTINE
     Indication: Smoking cessation therapy
     Dosage: 20 PIECES AS NEEDED ORAL ?
     Route: 048
  2. NICORETTE [Suspect]
     Active Substance: NICOTINE
  3. NICOTINE [Suspect]
     Active Substance: NICOTINE
  4. PAXIL [Concomitant]
     Active Substance: PAROXETINE HYDROCHLORIDE
  5. THYROID [Concomitant]
     Active Substance: LEVOTHYROXINE\LIOTHYRONINE
  6. VITAMIN D [Concomitant]
     Active Substance: VITAMIN D NOS
  7. CALCIUM [Concomitant]
     Active Substance: CALCIUM
  8. GLUCOSAMINE [Concomitant]
     Active Substance: GLUCOSAMINE
  9. ZINC [Concomitant]
     Active Substance: ZINC
  10. MAGNESIUM [Concomitant]
     Active Substance: MAGNESIUM
  11. POTASSIUM [Concomitant]
     Active Substance: POTASSIUM
  12. MELATONIN [Concomitant]
     Active Substance: MELATONIN

REACTIONS (4)
  - Drug dependence [None]
  - Liver disorder [None]
  - Product complaint [None]
  - Product formulation issue [None]

NARRATIVE: CASE EVENT DATE: 20240904
